FAERS Safety Report 8324886-3 (Version None)
Quarter: 2012Q2

REPORT INFORMATION
  Report Type: 
  Country: None (occurrence: None)
  Receive Date: 20120427
  Receipt Date: 20120412
  Transmission Date: 20120825
  Serious: Yes (Life-Threatening, Hospitalization)
  Sender: FDA-Public Use
  Company Number: 2012SGN00157

PATIENT
  Sex: Female

DRUGS (1)
  1. ADCETRIS [Suspect]
     Dates: end: 20120328

REACTIONS (3)
  - FEBRILE NEUTROPENIA [None]
  - METABOLIC ACIDOSIS [None]
  - SEPSIS [None]
